FAERS Safety Report 7361113-8 (Version None)
Quarter: 2011Q1

REPORT INFORMATION
  Report Type: 
  Country: None (occurrence: None)
  Receive Date: 20110315
  Receipt Date: 20110315
  Transmission Date: 20110831
  Serious: Yes (Life-Threatening, Hospitalization, Disabling)
  Sender: FDA-Public Use
  Company Number: None

PATIENT
  Sex: Male
  Weight: 125.6464 kg

DRUGS (1)
  1. AMIODARONE HCL [Suspect]
     Indication: HEART RATE INCREASED
     Dosage: 400 MG ONE A DAY
     Dates: start: 20100911

REACTIONS (1)
  - TRAUMATIC LUNG INJURY [None]
